FAERS Safety Report 23760368 (Version 1)
Quarter: 2024Q2

REPORT INFORMATION
  Report Type: Spontaneous
  Country: TR (occurrence: TR)
  Receive Date: 20240419
  Receipt Date: 20240419
  Transmission Date: 20240716
  Serious: Yes (Death, Life-Threatening, Hospitalization, Other)
  Sender: FDA-Public Use
  Company Number: TR-ALKEM LABORATORIES LIMITED-TR-ALKEM-2024-07877

PATIENT
  Age: 16 Year
  Sex: Female

DRUGS (2)
  1. METFORMIN HYDROCHLORIDE [Suspect]
     Active Substance: METFORMIN HYDROCHLORIDE
     Indication: Product used for unknown indication
     Dosage: 100 DOSAGE FORM (850 MG TABLETS)
     Route: 048
  2. NATEGLINIDE [Suspect]
     Active Substance: NATEGLINIDE
     Indication: Product used for unknown indication
     Dosage: 84 DOSAGE FORM (120 MG TABLETS)
     Route: 048

REACTIONS (7)
  - Renal failure [Fatal]
  - Suicide attempt [Fatal]
  - Cardiac arrest [Fatal]
  - Multiple organ dysfunction syndrome [Fatal]
  - Toxicity to various agents [Fatal]
  - Overdose [Fatal]
  - Lactic acidosis [Fatal]
